FAERS Safety Report 6948175-4 (Version None)
Quarter: 2010Q3

REPORT INFORMATION
  Report Type: 
  Country: None (occurrence: None)
  Receive Date: 20100828
  Receipt Date: 20091021
  Transmission Date: 20110219
  Serious: No
  Sender: FDA-Public Use
  Company Number: US-ABBOTT-09P-163-0604720-00

PATIENT
  Sex: Male
  Weight: 111.68 kg

DRUGS (4)
  1. NIASPAN [Suspect]
     Indication: BLOOD CHOLESTEROL INCREASED
     Route: 048
     Dates: start: 20091018
  2. DIOVAN [Concomitant]
     Indication: HYPERTENSION
     Route: 048
  3. ACIPHEX [Concomitant]
     Indication: GASTRIC ULCER
     Route: 048
  4. ANDROGEL [Concomitant]
     Indication: HORMONE REPLACEMENT THERAPY

REACTIONS (1)
  - BURNING SENSATION [None]
